FAERS Safety Report 6021326-4 (Version None)
Quarter: 2008Q4

REPORT INFORMATION
  Report Type: 
  Country: None (occurrence: None)
  Receive Date: 20081229
  Receipt Date: 20081223
  Transmission Date: 20090506
  Serious: Yes (Congenital Anomaly)
  Sender: FDA-Public Use
  Company Number: A0680443A

PATIENT
  Sex: Male

DRUGS (3)
  1. PAXIL [Suspect]
     Indication: DEPRESSION
     Dates: start: 20020101, end: 20040101
  2. PAXIL CR [Suspect]
     Indication: DEPRESSION
     Dates: start: 20031218, end: 20040311
  3. PAROXETINE HCL [Suspect]
     Indication: DEPRESSION
     Dates: start: 20031002

REACTIONS (9)
  - ASTHMA [None]
  - ATRIAL SEPTAL DEFECT [None]
  - BRONCHIAL HYPERREACTIVITY [None]
  - CARDIAC MURMUR [None]
  - DRUG EXPOSURE DURING PREGNANCY [None]
  - MULTIPLE CONGENITAL ABNORMALITIES [None]
  - PNEUMONIA [None]
  - RESPIRATORY DISTRESS [None]
  - TACHYPNOEA [None]
